FAERS Safety Report 4360726-5 (Version None)
Quarter: 2004Q2

REPORT INFORMATION
  Report Type: 
  Country: None (occurrence: None)
  Receive Date: 20040514
  Receipt Date: 20040510
  Transmission Date: 20050107
  Serious: Yes (Death)
  Sender: FDA-Public Use
  Company Number: GBWYE623805MAR04

PATIENT
  Age: 58 Year
  Sex: Male

DRUGS (3)
  1. EFFEXOR XR [Suspect]
     Dosage: 98 X 75 MG; 112 X150 MG, ORAL
     Route: 048
  2. CETIRIZINE (CETIRIZINE, , 0) [Suspect]
     Dosage: 30 X 10 MG; ORAL
     Route: 048
     Dates: start: 20031111
  3. MELOXICAM (MELOXICAM ,  ,  0) [Suspect]
     Dosage: 18 X 15 MG,  ORAL
     Route: 048
     Dates: start: 20031111

REACTIONS (5)
  - COMPLETED SUICIDE [None]
  - HYPOTENSION [None]
  - INTENTIONAL OVERDOSE [None]
  - RESPIRATORY FAILURE [None]
  - TACHYCARDIA [None]
